FAERS Safety Report 10071922 (Version 1)
Quarter: 2014Q2

REPORT INFORMATION
  Report Type: Spontaneous
  Country: US (occurrence: US)
  Receive Date: 20140411
  Receipt Date: 20140411
  Transmission Date: 20141212
  Serious: Yes (Hospitalization)
  Sender: FDA-Public Use
  Company Number: US-009507513-1404USA002346

PATIENT
  Age: 29 Year
  Sex: Male

DRUGS (1)
  1. INTRONA [Suspect]
     Indication: NEOPLASM MALIGNANT
     Dosage: 30 UNITS EVERY 2-3 DAYS
     Dates: start: 201402, end: 201403

REACTIONS (2)
  - Mental disorder [Not Recovered/Not Resolved]
  - Ammonia abnormal [Not Recovered/Not Resolved]
